FAERS Safety Report 16378098 (Version 1)
Quarter: 2019Q2

REPORT INFORMATION
  Report Type: Spontaneous
  Country: US (occurrence: US)
  Receive Date: 20190531
  Receipt Date: 20190531
  Transmission Date: 20190711
  Serious: No
  Sender: FDA-Public Use
  Company Number: US-OSMOTICA_PHARMACEUTICAL_US_LLC-POI0573201900147

PATIENT
  Age: 62 Year
  Sex: Female
  Weight: 83.54 kg

DRUGS (3)
  1. OSMOLEX ER [Suspect]
     Active Substance: AMANTADINE
     Indication: PRODUCT USED FOR UNKNOWN INDICATION
     Dates: start: 201903, end: 201904
  2. OSMOLEX ER [Suspect]
     Active Substance: AMANTADINE
     Dates: start: 201904
  3. OSMOLEX ER [Suspect]
     Active Substance: AMANTADINE
     Dates: start: 201904, end: 201904

REACTIONS (2)
  - Nausea [Unknown]
  - Therapeutic product effect incomplete [Unknown]

NARRATIVE: CASE EVENT DATE: 201903
